FAERS Safety Report 8653358 (Version 3)
Quarter: 2012Q4

REPORT INFORMATION
  Report Type: 
  Country: US (occurrence: US)
  Receive Date: 20120706
  Receipt Date: 20120828
  Transmission Date: 20130627
  Serious: Yes (Hospitalization)
  Sender: FDA-Public Use
  Company Number: CHPA2012US013969

PATIENT
  Age: 84 Year
  Sex: Female

DRUGS (3)
  1. BENEFIBER W/ WHEAT DEXTRIN [Suspect]
     Indication: NUTRITIONAL SUPPORT
     Dosage: 3 DF, LESS THAN 3 TIMES A DAY
     Route: 048
  2. BENEFIBER UNKNOWN [Suspect]
     Dosage: 3 TSP, TID
     Route: 048
  3. COLACE [Concomitant]
     Dosage: Unk, Unk
     Route: 048

REACTIONS (3)
  - Intestinal obstruction [Recovered/Resolved]
  - Constipation [Recovered/Resolved]
  - Abdominal pain upper [Recovered/Resolved]
